FAERS Safety Report 7543056-X (Version None)
Quarter: 2011Q2

REPORT INFORMATION
  Report Type: 
  Country: None (occurrence: None)
  Receive Date: 20110613
  Receipt Date: 20110609
  Transmission Date: 20111010
  Serious: Yes (Disabling)
  Sender: FDA-Public Use
  Company Number: US-PFIZER INC-2011127055

PATIENT
  Sex: Female
  Weight: 77 kg

DRUGS (7)
  1. NEURONTIN [Suspect]
     Indication: FIBROMYALGIA
     Dosage: UNK
     Dates: start: 20100101
  2. ADVAIR DISKUS 100/50 [Concomitant]
     Indication: CHRONIC OBSTRUCTIVE PULMONARY DISEASE
     Dosage: UNK
  3. VENTOLIN HFA [Concomitant]
     Indication: CHRONIC OBSTRUCTIVE PULMONARY DISEASE
     Dosage: UNK
  4. LYRICA [Suspect]
     Indication: FIBROMYALGIA
     Dosage: 75 MG, 2X/DAY
     Route: 048
     Dates: start: 20110101
  5. NEXIUM [Concomitant]
     Indication: GASTRIC DISORDER
     Dosage: UNK
     Route: 048
  6. TRAMADOL [Concomitant]
     Indication: FIBROMYALGIA
     Dosage: UNK
  7. ATROVENT [Concomitant]
     Indication: CHRONIC OBSTRUCTIVE PULMONARY DISEASE
     Dosage: UNK

REACTIONS (5)
  - OEDEMA PERIPHERAL [None]
  - GAIT DISTURBANCE [None]
  - PAIN [None]
  - MYALGIA [None]
  - WEIGHT INCREASED [None]
